FAERS Safety Report 10536305 (Version 1)
Quarter: 2014Q4

REPORT INFORMATION
  Report Type: Spontaneous
  Country: US (occurrence: US)
  Receive Date: 20141022
  Receipt Date: 20141022
  Transmission Date: 20150529
  Serious: No
  Sender: FDA-Public Use
  Company Number: US-RECKITT BENCKISER PHARMACEUTICAL, INC-RB-63788-2014

PATIENT

DRUGS (11)
  1. SUBOXONE [Suspect]
     Active Substance: BUPRENORPHINE HYDROCHLORIDE\NALOXONE HYDROCHLORIDE
     Dosage: SUBOXONE FILM
     Route: 060
     Dates: start: 2013, end: 201401
  2. SUBOXONE [Suspect]
     Active Substance: BUPRENORPHINE HYDROCHLORIDE\NALOXONE HYDROCHLORIDE
     Dosage: SUBOXONE FILM; CUTTING AND TAKING LESS THAN PRESCRIBED
     Route: 060
     Dates: start: 201401
  3. ZANTAC [Concomitant]
     Active Substance: RANITIDINE HYDROCHLORIDE
     Indication: GASTROOESOPHAGEAL REFLUX DISEASE
     Dosage: UNKNOWN DAILY DOSING
     Route: 048
  4. UNKNOWN OPIATE [Suspect]
     Active Substance: UNSPECIFIED INGREDIENT
     Indication: PRODUCT USED FOR UNKNOWN INDICATION
     Dosage: UNKNOWN DOSING DETAILS
     Route: 048
     Dates: start: 2013, end: 201311
  5. MELATONIN [Concomitant]
     Active Substance: MELATONIN
     Indication: INSOMNIA
     Dosage: UNKNOWN DAILY DOSING
     Route: 048
  6. VITAMIN E [Concomitant]
     Active Substance: .ALPHA.-TOCOPHEROL
     Indication: ROUTINE HEALTH MAINTENANCE
     Dosage: UNKNOWN DAILY DOSING
     Route: 048
  7. SUBOXONE [Suspect]
     Active Substance: BUPRENORPHINE HYDROCHLORIDE\NALOXONE HYDROCHLORIDE
     Indication: DRUG DEPENDENCE
     Dosage: SUBOXONE FILM; DOSE DURING INDUCTION PERIOD UNKNOWN
     Route: 060
     Dates: start: 201311, end: 2013
  8. UNKNOWN BENZODIAZEPINE [Suspect]
     Active Substance: BENZODIAZEPINE
     Indication: PRODUCT USED FOR UNKNOWN INDICATION
     Dosage: UNKNOWN DOSING DETAILS
     Route: 048
     Dates: start: 2013, end: 201311
  9. IBUPROFEN. [Concomitant]
     Active Substance: IBUPROFEN
     Indication: ARTHRITIS
     Dosage: UNKNOWN DAILY DOSING
     Route: 048
  10. NICOTINE. [Concomitant]
     Active Substance: NICOTINE
     Indication: NICOTINE DEPENDENCE
     Dosage: 1 CIGARETTE AT UNSPECIFIED FREQUENCY
     Route: 055
  11. UNKNOWN AMPHETAMINE [Suspect]
     Active Substance: AMPHETAMINE
     Indication: PRODUCT USED FOR UNKNOWN INDICATION
     Dosage: UNKNOWN DOSING DETAILS
     Route: 048
     Dates: start: 2013, end: 201311

REACTIONS (5)
  - Hot flush [Not Recovered/Not Resolved]
  - Intentional underdose [Not Recovered/Not Resolved]
  - Drug abuse [Not Recovered/Not Resolved]
  - Wrong technique in drug usage process [Not Recovered/Not Resolved]
  - Off label use [Recovered/Resolved]

NARRATIVE: CASE EVENT DATE: 201311
